FAERS Safety Report 8342705-6 (Version None)
Quarter: 2012Q2

REPORT INFORMATION
  Report Type: 
  Country: None (occurrence: None)
  Receive Date: 20120502
  Receipt Date: 20120423
  Transmission Date: 20120825
  Serious: Yes (Other)
  Sender: FDA-Public Use
  Company Number: 2012SP013386

PATIENT
  Age: 81 Year
  Sex: Male
  Weight: 51.2 kg

DRUGS (8)
  1. MOTILIUM [Concomitant]
  2. DIGILANOGEN (DESLANOSIDE) [Concomitant]
  3. VERAPAMIL HCL [Concomitant]
  4. SULFAMETHOXAZOLE AND TRIMETHOPRIM [Concomitant]
  5. TAKPRON OD [Concomitant]
  6. TEMODAL [Suspect]
     Indication: GLIOBLASTOMA MULTIFORME
     Dosage: 75 MG/M2; QD; INDRP
     Route: 041
     Dates: start: 20110621, end: 20110801
  7. ISOTONIC SODIUM CHLORIDE SOLUTION [Concomitant]
  8. CIBENOL [Concomitant]

REACTIONS (3)
  - TACHYCARDIA [None]
  - BRAIN OEDEMA [None]
  - ATRIAL FIBRILLATION [None]
